FAERS Safety Report 23774217 (Version 4)
Quarter: 2024Q3

REPORT INFORMATION
  Report Type: Spontaneous
  Country: US (occurrence: US)
  Receive Date: 20240423
  Receipt Date: 20240814
  Transmission Date: 20241016
  Serious: Yes (Disabling, Other)
  Sender: CHATTEM
  Company Number: US-OPELLA-2024OHG013353

PATIENT
  Sex: Male

DRUGS (1)
  1. TALC [Suspect]
     Active Substance: TALC
     Indication: Product used for unknown indication

REACTIONS (12)
  - Pleural mesothelioma [Unknown]
  - Disability [Unknown]
  - Prostate cancer [Unknown]
  - Back pain [Unknown]
  - Exposure to chemical pollution [Unknown]
  - Life expectancy shortened [Unknown]
  - Injury [Unknown]
  - Pain [Unknown]
  - Anxiety [Unknown]
  - Quality of life decreased [Unknown]
  - Dyspnoea exertional [Unknown]
  - Dysuria [Unknown]

NARRATIVE: CASE EVENT DATE: 20211004
